FAERS Safety Report 24330030 (Version 1)
Quarter: 2024Q3

REPORT INFORMATION
  Report Type: Spontaneous
  Country: US (occurrence: US)
  Receive Date: 20240917
  Receipt Date: 20240917
  Transmission Date: 20241017
  Serious: Yes (Hospitalization)
  Sender: PRINSTON PHARMACEUTICAL
  Company Number: US-PRINSTON PHARMACEUTICAL INC.-2024PRN00339

PATIENT
  Sex: Male

DRUGS (3)
  1. LISINOPRIL [Suspect]
     Active Substance: LISINOPRIL
     Dosage: UNK
  2. ORGOVYX [Concomitant]
     Active Substance: RELUGOLIX
     Indication: Prostate cancer
     Route: 048
  3. ORGOVYX [Concomitant]
     Active Substance: RELUGOLIX
     Dosage: 120 MG, 1X/DAY
     Route: 048
     Dates: start: 20240521

REACTIONS (2)
  - Hypersensitivity [Unknown]
  - Swelling [Unknown]
